FAERS Safety Report 9319967 (Version 1)
Quarter: 2013Q2

REPORT INFORMATION
  Report Type: Spontaneous
  Country: US (occurrence: US)
  Receive Date: 20130530
  Receipt Date: 20130530
  Transmission Date: 20140414
  Serious: Yes (Other)
  Sender: FDA-Public Use
  Company Number: US-TEVA-408320USA

PATIENT
  Sex: Female

DRUGS (1)
  1. COPAXONE [Suspect]
     Indication: MULTIPLE SCLEROSIS
     Dates: start: 20110414

REACTIONS (5)
  - Multiple sclerosis relapse [Unknown]
  - Hyperaesthesia [Unknown]
  - Temperature intolerance [Unknown]
  - Fall [Unknown]
  - Diplopia [Unknown]
